FAERS Safety Report 24250816 (Version 1)
Quarter: 2024Q3

REPORT INFORMATION
  Report Type: Spontaneous
  Country: CA (occurrence: CA)
  Receive Date: 20240826
  Receipt Date: 20240826
  Transmission Date: 20241017
  Serious: Yes (Death, Life-Threatening, Hospitalization, Disabling, Other)
  Sender: DAIICHI
  Company Number: CA-AstraZeneca-2024A189998

PATIENT
  Age: 67 Year
  Sex: Female

DRUGS (2)
  1. TRASTUZUMAB DERUXTECAN [Suspect]
     Active Substance: TRASTUZUMAB DERUXTECAN
     Indication: Breast cancer metastatic
     Dosage: 5.4 MG/KG, ONCE EVERY 3 WK
     Route: 042
  2. TRASTUZUMAB DERUXTECAN [Suspect]
     Active Substance: TRASTUZUMAB DERUXTECAN
     Dosage: 405 MG, ONCE EVERY 3 WK
     Route: 042

REACTIONS (6)
  - Dyspnoea [Fatal]
  - Malignant neoplasm progression [Fatal]
  - Metastases to lung [Fatal]
  - Pneumonia [Fatal]
  - Pneumonitis [Fatal]
  - Pulmonary fibrosis [Fatal]
